FAERS Safety Report 6725045-8 (Version None)
Quarter: 2010Q2

REPORT INFORMATION
  Report Type: 
  Country: None (occurrence: None)
  Receive Date: 20100514
  Receipt Date: 20100506
  Transmission Date: 20101027
  Serious: No
  Sender: FDA-Public Use
  Company Number: US-BIOGENIDEC-2010BI015653

PATIENT
  Sex: Female

DRUGS (5)
  1. AVONEX [Suspect]
     Indication: MULTIPLE SCLEROSIS
     Route: 030
     Dates: start: 19961001, end: 20010801
  2. COPAXONE [Concomitant]
  3. PREDNISONE [Concomitant]
     Indication: PREMEDICATION
     Dates: start: 19970101, end: 19970601
  4. ADDERALL 30 [Concomitant]
     Dates: start: 19970101
  5. CYTOXAN [Concomitant]
     Indication: MULTIPLE SCLEROSIS RELAPSE
     Dates: start: 19990101, end: 20010101

REACTIONS (3)
  - CENTRAL NERVOUS SYSTEM LESION [None]
  - INFLUENZA LIKE ILLNESS [None]
  - MULTIPLE SCLEROSIS RELAPSE [None]
